FAERS Safety Report 18311356 (Version 2)
Quarter: 2020Q4

REPORT INFORMATION
  Report Type: Other
  Country: SK (occurrence: SK)
  Receive Date: 20200925
  Receipt Date: 20201014
  Transmission Date: 20210113
  Serious: Yes (Hospitalization, Other)
  Sender: FDA-Public Use
  Company Number: SK-STRIDES ARCOLAB LIMITED-2019SP008025

PATIENT
  Age: 66 Year
  Sex: Male

DRUGS (27)
  1. INDAPAMIDE. [Suspect]
     Active Substance: INDAPAMIDE
     Dosage: 2.5 UNK, UNKNOWN
     Route: 065
     Dates: start: 201311
  2. AMLODIPINE [Suspect]
     Active Substance: AMLODIPINE BESYLATE
     Indication: HYPERTENSION
     Dosage: 5 MILLIGRAM, QD
     Route: 065
  3. METFORMIN [Suspect]
     Active Substance: METFORMIN HYDROCHLORIDE
     Dosage: 1000 MILLIGRAM, BID (DOSE INCREASED)
     Route: 065
     Dates: start: 200504, end: 201106
  4. ATORVASTATIN CALCIUM. [Suspect]
     Active Substance: ATORVASTATIN CALCIUM
     Dosage: 40 MILLIGRAM, QD (DOSE INCREASED)
     Route: 065
     Dates: start: 200508, end: 201106
  5. SITAGLIPTIN PHOSPHATE [Suspect]
     Active Substance: SITAGLIPTIN PHOSPHATE
     Indication: TYPE 2 DIABETES MELLITUS
     Dosage: 100 MILLIGRAM, QD TABLET
     Route: 065
     Dates: start: 201307, end: 201601
  6. BISOPROLOL FUMARATE. [Suspect]
     Active Substance: BISOPROLOL FUMARATE
     Indication: PRODUCT USED FOR UNKNOWN INDICATION
     Dosage: 5 MILLIGRAM, QD
     Route: 065
     Dates: start: 200508
  7. RIVAROXABAN [Concomitant]
     Active Substance: RIVAROXABAN
     Indication: PRODUCT USED FOR UNKNOWN INDICATION
     Dosage: UNK
     Route: 065
     Dates: start: 201311
  8. METFORMIN [Suspect]
     Active Substance: METFORMIN HYDROCHLORIDE
     Dosage: 1700 MILLIGRAM, QD
     Route: 065
     Dates: start: 200103
  9. PERINDOPRIL [Suspect]
     Active Substance: PERINDOPRIL
     Dosage: 10 MILLIGRAM, QD
     Route: 065
     Dates: start: 201311
  10. BISOPROLOL FUMARATE. [Suspect]
     Active Substance: BISOPROLOL FUMARATE
     Dosage: UNK, DOSE INCREASED
     Route: 065
  11. EMPAGLIFLOZIN [Concomitant]
     Active Substance: EMPAGLIFLOZIN
     Indication: PRODUCT USED FOR UNKNOWN INDICATION
     Dosage: UNK (DAILY DOSE)
     Route: 065
  12. INSULIN HUMAN [Concomitant]
     Active Substance: INSULIN HUMAN
     Indication: PRODUCT USED FOR UNKNOWN INDICATION
     Dosage: UNK (10-0-10 UNITS, LATER INCREASED TO 16-0-14 UNITS)
     Route: 065
  13. INSULIN HUMAN [Concomitant]
     Active Substance: INSULIN HUMAN
     Dosage: UNK (DOSE WAS INCREASED TO 16-0-14 UNITS, PREMIXED HUMAN INSULIN)
     Route: 065
  14. AMLODIPINE [Suspect]
     Active Substance: AMLODIPINE BESYLATE
     Dosage: 10 MILLIGRAM, QD
     Route: 065
     Dates: start: 201601
  15. INSULIN HUMAN [Concomitant]
     Active Substance: INSULIN HUMAN
     Dosage: 20 IU INTERNATIONAL UNIT(S) (10-0-10 UNITS AND TITRATED UP TO 16-0-14 UNITS, PREMIXED HUMAN INSULIN,
     Route: 058
     Dates: start: 201106
  16. PERINDOPRIL [Suspect]
     Active Substance: PERINDOPRIL
     Indication: HYPERTENSION
     Dosage: 4 MILLIGRAM, QD
     Route: 065
  17. PERINDOPRIL [Suspect]
     Active Substance: PERINDOPRIL
     Dosage: 10 MILLIGRAM, QD
     Route: 065
     Dates: start: 201601
  18. INDAPAMIDE. [Suspect]
     Active Substance: INDAPAMIDE
     Indication: PRODUCT USED FOR UNKNOWN INDICATION
     Dosage: UNK, QD
     Route: 065
     Dates: start: 201311
  19. METFORMIN [Suspect]
     Active Substance: METFORMIN HYDROCHLORIDE
     Indication: TYPE 2 DIABETES MELLITUS
     Dosage: 850 MILLIGRAM, BID
     Route: 065
  20. INSULIN MIXTARD [Suspect]
     Active Substance: INSULIN HUMAN
     Indication: TYPE 2 DIABETES MELLITUS
     Dosage: UNK (16-0-14 IU ), 2X/DAY
     Route: 058
     Dates: start: 2014
  21. INDAPAMIDE. [Suspect]
     Active Substance: INDAPAMIDE
     Dosage: 2.5 MILLIGRAM, QD
     Route: 065
     Dates: start: 201601
  22. ATORVASTATIN CALCIUM. [Suspect]
     Active Substance: ATORVASTATIN CALCIUM
     Dosage: 20 MILLIGRAM, QD
     Route: 065
  23. ATORVASTATIN CALCIUM. [Suspect]
     Active Substance: ATORVASTATIN CALCIUM
     Dosage: 80 MILLIGRAM, QD
     Route: 065
     Dates: start: 201601
  24. GLIMEPIRIDE. [Suspect]
     Active Substance: GLIMEPIRIDE
     Indication: TYPE 2 DIABETES MELLITUS
     Dosage: 4 MILLIGRAM, QD
     Route: 065
     Dates: start: 200504, end: 201601
  25. AMLODIPINE [Suspect]
     Active Substance: AMLODIPINE BESYLATE
     Dosage: 10 MILLIGRAM, QD
     Route: 065
     Dates: start: 201311
  26. ATORVASTATIN CALCIUM. [Suspect]
     Active Substance: ATORVASTATIN CALCIUM
     Indication: PRODUCT USED FOR UNKNOWN INDICATION
     Dosage: UNK (DAILY DOSE)
     Route: 065
     Dates: start: 200103
  27. INSULIN MIXTARD [Suspect]
     Active Substance: INSULIN HUMAN
     Dosage: UNK (10-0-U-10IU ) 2X/DAY
     Route: 058

REACTIONS (8)
  - Acute myocardial infarction [Recovered/Resolved]
  - Hypertension [Recovered/Resolved]
  - Glycosylated haemoglobin increased [Recovered/Resolved]
  - Glycosylated haemoglobin decreased [Recovered/Resolved]
  - Diabetes mellitus [Recovered/Resolved]
  - Myocardial infarction [Recovered/Resolved]
  - Weight increased [Recovered/Resolved]
  - Hyperlipidaemia [Recovered/Resolved]

NARRATIVE: CASE EVENT DATE: 200508
